FAERS Safety Report 6631497-4 (Version None)
Quarter: 2010Q1

REPORT INFORMATION
  Report Type: 
  Country: None (occurrence: None)
  Receive Date: 20100312
  Receipt Date: 20100228
  Transmission Date: 20100710
  Serious: Yes (Other)
  Sender: FDA-Public Use
  Company Number: PHHY2010DE12031

PATIENT
  Sex: Female

DRUGS (1)
  1. ACLASTA [Suspect]
     Dosage: UNK
     Route: 042
     Dates: start: 20100201, end: 20100201

REACTIONS (4)
  - CIRCULATORY COLLAPSE [None]
  - CONJUNCTIVITIS [None]
  - IRIDOCYCLITIS [None]
  - NAUSEA [None]
